FAERS Safety Report 26073209 (Version 1)
Quarter: 2025Q4

REPORT INFORMATION
  Report Type: Spontaneous
  Country: PR (occurrence: PR)
  Receive Date: 20251121
  Receipt Date: 20251121
  Transmission Date: 20260117
  Serious: No
  Sender: ABBVIE
  Company Number: PR-ABBVIE-6558330

PATIENT
  Age: 45 Year
  Sex: Female

DRUGS (1)
  1. RISANKIZUMAB [Suspect]
     Active Substance: RISANKIZUMAB
     Indication: Colitis ulcerative
     Route: 058

REACTIONS (3)
  - Pain in extremity [Recovered/Resolved]
  - Peripheral swelling [Recovered/Resolved]
  - Hypoaesthesia [Recovered/Resolved]
